FAERS Safety Report 23215052 (Version 3)
Quarter: 2024Q1

REPORT INFORMATION
  Report Type: Report from Study
  Country: US (occurrence: US)
  Receive Date: 20231122
  Receipt Date: 20240125
  Transmission Date: 20240410
  Serious: Yes (Other)
  Sender: FDA-Public Use
  Company Number: US-ABBVIE-5498944

PATIENT
  Age: 75 Year
  Sex: Female
  Weight: 111.1 kg

DRUGS (1)
  1. RINVOQ [Suspect]
     Active Substance: UPADACITINIB
     Indication: Rheumatoid arthritis
     Route: 048
     Dates: start: 20220705, end: 20231010

REACTIONS (6)
  - Pulmonary thrombosis [Unknown]
  - Thrombosis [Unknown]
  - Deep vein thrombosis [Recovering/Resolving]
  - Skin discolouration [Unknown]
  - Superficial vein thrombosis [Recovering/Resolving]
  - Erythema [Unknown]

NARRATIVE: CASE EVENT DATE: 20231022
